FAERS Safety Report 21923615 (Version 1)
Quarter: 2023Q1

REPORT INFORMATION
  Report Type: Other
  Country: IT (occurrence: IT)
  Receive Date: 20230130
  Receipt Date: 20230130
  Transmission Date: 20230418
  Serious: Yes (Other)
  Sender: FDA-Public Use
  Company Number: IT-CELLTRION INC.-2023IT001614

PATIENT

DRUGS (14)
  1. RITUXIMAB [Suspect]
     Active Substance: RITUXIMAB
     Indication: Diffuse large B-cell lymphoma
     Dosage: UNK, UNKNOWN FREQ.
     Dates: start: 20220527, end: 20220621
  2. RITUXIMAB [Suspect]
     Active Substance: RITUXIMAB
     Dosage: UNK, UNKNOWN FREQ.
     Dates: start: 20210415, end: 20210820
  3. RITUXIMAB [Suspect]
     Active Substance: RITUXIMAB
     Dosage: UNK, UNKNOWN FREQ.
     Dates: start: 20211012, end: 20211222
  4. POLATUZUMAB VEDOTIN [Suspect]
     Active Substance: POLATUZUMAB VEDOTIN
     Indication: Diffuse large B-cell lymphoma
     Dosage: UNK, UNKNOWN FREQ.
     Dates: start: 20220527, end: 20220621
  5. BENDAMUSTINE HYDROCHLORIDE [Suspect]
     Active Substance: BENDAMUSTINE HYDROCHLORIDE
     Indication: Diffuse large B-cell lymphoma
     Dosage: UNK, CYCLIC
     Route: 042
     Dates: start: 20220527, end: 20220621
  6. LENALIDOMIDE [Suspect]
     Active Substance: LENALIDOMIDE
     Indication: Diffuse large B-cell lymphoma
     Dosage: UNK, UNKNOWN FREQ.
     Dates: start: 20220214, end: 20220307
  7. ETOPOSIDE [Suspect]
     Active Substance: ETOPOSIDE
     Indication: Diffuse large B-cell lymphoma
     Dosage: UNK, UNKNOWN FREQ.
     Dates: start: 20210415, end: 20210820
  8. PREDNISONE [Suspect]
     Active Substance: PREDNISONE
     Indication: Diffuse large B-cell lymphoma
     Dosage: UNK,UNKNOWN FREQ.
     Dates: start: 20210415, end: 20210820
  9. DOXORUBICIN [Suspect]
     Active Substance: DOXORUBICIN
     Indication: Diffuse large B-cell lymphoma
     Dosage: UNK, UNKNOWN FREQ.
     Dates: start: 20210415, end: 20210820
  10. OXALIPLATIN [Suspect]
     Active Substance: OXALIPLATIN
     Indication: Diffuse large B-cell lymphoma
     Dosage: UNK, UNKNOWN FREQ.
     Dates: start: 20211012, end: 20211222
  11. DEXAMETHASONE [Suspect]
     Active Substance: DEXAMETHASONE
     Indication: Diffuse large B-cell lymphoma
     Dosage: UNK, UNKNOWN FREQ
     Dates: start: 20211012, end: 20211222
  12. VINCRISTINE [Suspect]
     Active Substance: VINCRISTINE
     Indication: Diffuse large B-cell lymphoma
     Dosage: UNK, UNKNOWN FREQ.
     Dates: start: 20210415, end: 20210820
  13. CYTARABINE [Suspect]
     Active Substance: CYTARABINE
     Indication: Diffuse large B-cell lymphoma
     Dosage: UNK, UNKNOWN FREQ.
     Dates: start: 20211012, end: 20211222
  14. CYCLOPHOSPHAMIDE [Suspect]
     Active Substance: CYCLOPHOSPHAMIDE
     Indication: Diffuse large B-cell lymphoma
     Dosage: UNK, UNKNOWN FREQ.
     Dates: start: 20210415, end: 20210820

REACTIONS (4)
  - COVID-19 [Recovered/Resolved]
  - Blood lactate dehydrogenase increased [Unknown]
  - Therapy partial responder [Unknown]
  - Drug ineffective [Unknown]
